FAERS Safety Report 5447617-3 (Version None)
Quarter: 2007Q3

REPORT INFORMATION
  Report Type: 
  Country: None (occurrence: None)
  Receive Date: 20070910
  Receipt Date: 20070829
  Transmission Date: 20080115
  Serious: Yes (Hospitalization)
  Sender: FDA-Public Use
  Company Number: BR-ROCHE-514649

PATIENT
  Age: 42 Year
  Sex: Male

DRUGS (8)
  1. FUZEON [Suspect]
     Route: 058
     Dates: start: 20070801, end: 20070801
  2. TENOFOVIR DISOPROXIL FUMARATE [Suspect]
     Route: 065
     Dates: start: 20070801, end: 20070801
  3. DARUNAVIR [Suspect]
     Route: 065
     Dates: start: 20070801, end: 20070801
  4. ABACAVIR [Suspect]
     Route: 065
     Dates: start: 20070801, end: 20070801
  5. PSYCHOTROPIC DRUG NOS [Concomitant]
     Dosage: DRUG NAME REPORTED AS UNSPECIFIED PSYCHOTROPIC DRUG.
  6. BACTRIM [Concomitant]
     Indication: OPPORTUNISTIC INFECTION PROPHYLAXIS
  7. FLUCONAZOLE [Concomitant]
     Indication: OPPORTUNISTIC INFECTION PROPHYLAXIS
  8. AZITHROMYCIN [Concomitant]
     Indication: OPPORTUNISTIC INFECTION PROPHYLAXIS
     Dosage: DRUG NAME REPORTED AS AZYTHROMICIN.

REACTIONS (1)
  - MYOCARDITIS [None]
